FAERS Safety Report 14199646 (Version 2)
Quarter: 2018Q3

REPORT INFORMATION
  Report Type: Spontaneous
  Country: FR (occurrence: FR)
  Receive Date: 20171117
  Receipt Date: 20180823
  Transmission Date: 20181010
  Serious: Yes (Hospitalization, Congenital Anomaly)
  Sender: FDA-Public Use
  Company Number: FR-SA-2017SA222750

PATIENT
  Age: 22 Year
  Sex: Female
  Weight: 50 kg

DRUGS (27)
  1. DOXYLAMINE SUCCINATE. [Concomitant]
     Active Substance: DOXYLAMINE SUCCINATE
     Dosage: UNK UNK,UNK
     Route: 065
     Dates: start: 20170315
  2. TARDYFERON [Concomitant]
     Active Substance: FERROUS SULFATE
     Dosage: UNK UNK,UNK
     Route: 065
     Dates: start: 20170406, end: 201704
  3. MIFEGYNE [Concomitant]
     Active Substance: MIFEPRISTONE
     Dosage: UNK UNK,UNK
     Route: 065
     Dates: start: 20170424, end: 20170424
  4. LEVOBUPIVACAINE [Concomitant]
     Active Substance: LEVOBUPIVACAINE
     Dosage: UNK UNK,UNK
     Route: 065
     Dates: start: 20170426, end: 20170426
  5. PARACETAMOL [Concomitant]
     Active Substance: ACETAMINOPHEN
     Dosage: UNK UNK,UNK
     Route: 065
     Dates: start: 20170428, end: 2017
  6. SPASFON [PHLOROGLUCINOL] [Concomitant]
     Dosage: UNK UNK,UNK
     Route: 065
     Dates: start: 20170428, end: 2017
  7. GLUCOSE [Concomitant]
     Active Substance: DEXTROSE
     Dosage: UNK UNK,UNK
     Route: 065
     Dates: start: 20170426, end: 20170426
  8. CEFAZOLIN SODIUM. [Concomitant]
     Active Substance: CEFAZOLIN SODIUM
     Dosage: UNK UNK,UNK
     Route: 065
     Dates: start: 20170427, end: 20170427
  9. LANTUS [Suspect]
     Active Substance: INSULIN GLARGINE
     Dosage: 16 IU,QD
     Route: 064
  10. ALPRAZOLAM. [Concomitant]
     Active Substance: ALPRAZOLAM
     Dosage: UNK UNK,UNK
     Route: 065
     Dates: start: 20170425, end: 20170425
  11. CALCIUM CHLORIDE DIHYDRATE;MAGNESIUM CHLORIDE;POTASSIUM CHLORIDE;SODIU [Concomitant]
     Dosage: UNK UNK,UNK
     Route: 065
     Dates: start: 20170426, end: 20170427
  12. SPECIAFOLDINE [Concomitant]
     Active Substance: FOLIC ACID
     Dosage: UNK UNK,UNK
     Route: 065
     Dates: start: 20170117, end: 20170315
  13. ASPIRINE [Concomitant]
     Active Substance: ASPIRIN
     Dosage: UNK UNK,UNK
     Route: 065
     Dates: start: 20170201
  14. DOXYLAMINE SUCCINATE. [Concomitant]
     Active Substance: DOXYLAMINE SUCCINATE
     Route: 065
     Dates: start: 20170315
  15. LANTUS [Suspect]
     Active Substance: INSULIN GLARGINE
     Indication: TYPE 1 DIABETES MELLITUS
     Dosage: 19 IU,QD
     Route: 064
     Dates: start: 20140330
  16. NOVORAPID [Suspect]
     Active Substance: INSULIN ASPART
     Indication: TYPE 1 DIABETES MELLITUS
     Dosage: 30 DF,QD
     Route: 064
     Dates: start: 20140330
  17. NOVORAPID [Suspect]
     Active Substance: INSULIN ASPART
     Dosage: 13 DF,QD
     Route: 064
  18. XYLOCAINE WITH EPINEPHRINE [Concomitant]
     Active Substance: EPINEPHRINE BITARTRATE\LIDOCAINE HYDROCHLORIDE
     Dosage: UNK UNK,UNK
     Route: 065
     Dates: start: 20170426, end: 20170426
  19. SUFENTA [Concomitant]
     Active Substance: SUFENTANIL CITRATE
     Dosage: UNK UNK,UNK
     Route: 065
     Dates: start: 20170426, end: 20170427
  20. CYTOTEC [Concomitant]
     Active Substance: MISOPROSTOL
     Dosage: UNK UNK,UNK
     Route: 065
     Dates: start: 20170426, end: 20170426
  21. ONDANSETRON [Concomitant]
     Active Substance: ONDANSETRON
     Dosage: UNK UNK,UNK
     Route: 065
     Dates: start: 20170426, end: 20170426
  22. FLUCONAZOLE. [Concomitant]
     Active Substance: FLUCONAZOLE
     Dosage: UNK UNK,UNK
     Route: 065
     Dates: start: 20170425, end: 20170425
  23. BIPROFENID [Concomitant]
     Active Substance: KETOPROFEN
     Dosage: UNK UNK,UNK
     Route: 065
     Dates: start: 20170428, end: 2017
  24. NICOTINE. [Concomitant]
     Active Substance: NICOTINE
     Dosage: UNK UNK,UNK
     Route: 065
     Dates: start: 20170426, end: 20170426
  25. HYDROXYZINE [Concomitant]
     Active Substance: HYDROXYZINE HYDROCHLORIDE
     Dosage: UNK UNK,UNK
     Route: 065
     Dates: start: 20170426, end: 20170426
  26. SYNTOCINON [Concomitant]
     Active Substance: OXYTOCIN
     Dosage: UNK UNK,UNK
     Route: 065
     Dates: start: 20170427, end: 20170427
  27. IBUPROFENE [Concomitant]
     Active Substance: IBUPROFEN
     Dosage: UNK UNK,UNK
     Route: 065
     Dates: start: 20170427, end: 20170427

REACTIONS (5)
  - Hemivertebra [Recovered/Resolved with Sequelae]
  - Exposure during pregnancy [Unknown]
  - Abortion induced [Unknown]
  - Hydrocephalus [Recovered/Resolved with Sequelae]
  - Diabetic retinopathy [Not Recovered/Not Resolved]

NARRATIVE: CASE EVENT DATE: 20161210
